FAERS Safety Report 17246343 (Version 3)
Quarter: 2020Q1

REPORT INFORMATION
  Report Type: Report from Study
  Country: JP (occurrence: JP)
  Receive Date: 20200108
  Receipt Date: 20200226
  Transmission Date: 20200409
  Serious: Yes (Death, Other)
  Sender: FDA-Public Use
  Company Number: JP-KYOWAKIRIN-2020BKK000066

PATIENT

DRUGS (1)
  1. POTELIGEO [Suspect]
     Active Substance: MOGAMULIZUMAB-KPKC
     Indication: T-CELL LYMPHOMA
     Dosage: UNKNOWN
     Route: 065

REACTIONS (5)
  - Infection [Fatal]
  - Graft versus host disease in gastrointestinal tract [Unknown]
  - Cytomegalovirus enteritis [Unknown]
  - Graft versus host disease [Fatal]
  - Graft versus host disease in skin [Unknown]
